FAERS Safety Report 13639144 (Version 1)
Quarter: 2017Q2

REPORT INFORMATION
  Report Type: Spontaneous
  Country: US (occurrence: US)
  Receive Date: 20170609
  Receipt Date: 20170609
  Transmission Date: 20170830
  Serious: No
  Sender: FDA-Public Use
  Company Number: US-ROCHE-773527

PATIENT
  Sex: Male
  Weight: 72.6 kg

DRUGS (3)
  1. LITHIUM. [Concomitant]
     Active Substance: LITHIUM
     Route: 065
  2. CLONAZEPAM. [Suspect]
     Active Substance: CLONAZEPAM
     Indication: BIPOLAR DISORDER
     Dosage: SECOND INDICATION: PANIC DISORDER
     Route: 065
  3. DEPAKOTE ER [Concomitant]
     Active Substance: DIVALPROEX SODIUM
     Route: 065

REACTIONS (2)
  - No adverse event [Unknown]
  - Therapy non-responder [Unknown]
